FAERS Safety Report 9817322 (Version 2)
Quarter: 2014Q1

REPORT INFORMATION
  Report Type: Spontaneous
  Country: US (occurrence: US)
  Receive Date: 20140115
  Receipt Date: 20140115
  Transmission Date: 20141002
  Serious: Yes (Hospitalization, Other)
  Sender: FDA-Public Use
  Company Number: US-AMGEN-USASP2013086457

PATIENT
  Age: 81 Year
  Sex: Female
  Weight: 53.52 kg

DRUGS (18)
  1. PROLIA [Suspect]
     Indication: OSTEOPOROSIS
     Dosage: 60 MG X 1
     Route: 058
     Dates: start: 20131104
  2. SYNTHROID [Concomitant]
     Dosage: 125 MUG, 6 X/WEEK
     Route: 048
     Dates: start: 20131025, end: 20131025
  3. FERROUS GLUCONATE [Concomitant]
     Dosage: 325 MG, QD
     Route: 048
     Dates: start: 20131025
  4. NORVASC [Concomitant]
     Dosage: 5 MG, BID
     Route: 048
     Dates: start: 20131024
  5. LIPITOR [Concomitant]
     Dosage: 40 MG, QD
     Route: 048
     Dates: start: 20131024
  6. LASIX                              /00032601/ [Concomitant]
     Dosage: 40 MG, QD
     Route: 048
     Dates: start: 20131024
  7. METHOCARBAMOL [Concomitant]
     Dosage: 750 MG, TID
     Dates: start: 20131024
  8. RITALIN [Concomitant]
     Dosage: 10 MG, QID
     Route: 048
     Dates: start: 20131024
  9. BYSTOLIC [Concomitant]
     Dosage: 5 MG, QD
     Route: 048
  10. BENICAR [Concomitant]
     Dosage: 20 MG, QD
     Route: 048
     Dates: start: 20131024
  11. PLAVIX [Concomitant]
     Dosage: 75 MG, QD
     Route: 048
  12. OMEPRAZOLE [Concomitant]
     Dosage: 20 MG, QD
     Route: 048
     Dates: start: 20131024
  13. COUMADIN                           /00014802/ [Concomitant]
     Dosage: 5 MG, QD
     Route: 048
     Dates: start: 20131024
  14. DULERA [Concomitant]
     Dosage: 200 MCG - 5 MCG INHALE 1 PUFF, BID IN THE MORNING AND EVENING
     Dates: start: 20130412
  15. VENTOLIN                           /00139501/ [Concomitant]
     Dosage: 90 MUG,INHALE 2 PUFF EVERY 4 TO 6 HRS, PRN
  16. MOMETASONE FUROATE [Concomitant]
     Dosage: 220 MUG, INHALATION, AEROSOL POWDER
  17. PRILOSEC                           /00661201/ [Concomitant]
     Dosage: UNK
  18. PROAIR HFA [Concomitant]
     Dosage: 108 MUG (90 BASE) ACTUAL AEROSOL SOLUTION, UNK

REACTIONS (21)
  - Aortic valve calcification [Unknown]
  - Mitral valve calcification [Unknown]
  - Mitral valve incompetence [Unknown]
  - Aortic valve incompetence [Unknown]
  - Ventricular hypokinesia [Unknown]
  - Tricuspid valve incompetence [Unknown]
  - Pulmonary hypertension [Unknown]
  - Intestinal haemorrhage [Recovered/Resolved]
  - Dyspnoea [Recovering/Resolving]
  - Nasopharyngitis [Recovered/Resolved]
  - Fatigue [Not Recovered/Not Resolved]
  - Pyrexia [Not Recovered/Not Resolved]
  - Chest pain [Not Recovered/Not Resolved]
  - Productive cough [Not Recovered/Not Resolved]
  - Vitamin D deficiency [Unknown]
  - Anaemia [Unknown]
  - Oedema peripheral [Not Recovered/Not Resolved]
  - Arthralgia [Not Recovered/Not Resolved]
  - Pain in extremity [Not Recovered/Not Resolved]
  - Ear disorder [Unknown]
  - Head discomfort [Recovered/Resolved]
